FAERS Safety Report 6161061-5 (Version None)
Quarter: 2009Q2

REPORT INFORMATION
  Report Type: 
  Country: None (occurrence: None)
  Receive Date: 20090420
  Receipt Date: 20090408
  Transmission Date: 20091009
  Serious: Yes (Other)
  Sender: FDA-Public Use
  Company Number: GB-PFIZER INC-2009194793

PATIENT

DRUGS (5)
  1. CHAMPIX [Suspect]
     Indication: SMOKING CESSATION THERAPY
     Dosage: 1 MG, 2X/DAY
     Route: 048
     Dates: start: 20090113, end: 20090310
  2. FLUCLOXACILLIN [Concomitant]
     Indication: PHARYNGITIS
     Dosage: 250 MG, UNK
     Route: 048
     Dates: start: 20090123, end: 20090131
  3. HYDROXOCOBALAMIN [Concomitant]
     Indication: VITAMIN B12 DEFICIENCY
     Dosage: 1 MG, UNK
     Route: 058
     Dates: start: 20050822
  4. IBUPROFEN [Concomitant]
     Indication: BACK PAIN
     Dosage: 400 MG, UNK
     Route: 048
     Dates: start: 20081119
  5. INFLUENZA VIRUS VACCINE [Concomitant]
     Indication: IMMUNISATION
     Dosage: 0.5 ML, UNK
     Route: 058
     Dates: start: 20081126, end: 20081126

REACTIONS (4)
  - BLOOD PRESSURE INCREASED [None]
  - HEADACHE [None]
  - LETHARGY [None]
  - PHOTOPSIA [None]
